FAERS Safety Report 10153539 (Version 1)
Quarter: 2014Q2

REPORT INFORMATION
  Report Type: Spontaneous
  Country: US (occurrence: US)
  Receive Date: 20140505
  Receipt Date: 20140505
  Transmission Date: 20141212
  Serious: Yes (Death)
  Sender: FDA-Public Use
  Company Number: CHPA2014US006079

PATIENT
  Sex: Male

DRUGS (2)
  1. VOLTAREN GEL [Suspect]
     Indication: CANCER PAIN
     Route: 061
  2. VOLTAREN GEL [Suspect]
     Indication: OFF LABEL USE

REACTIONS (2)
  - Death [Fatal]
  - Drug dispensed to wrong patient [Unknown]
